FAERS Safety Report 5615397-4 (Version None)
Quarter: 2008Q1

REPORT INFORMATION
  Report Type: 
  Country: None (occurrence: None)
  Receive Date: 20080206
  Receipt Date: 20080129
  Transmission Date: 20080703
  Serious: Yes (Other)
  Sender: FDA-Public Use
  Company Number: GB-ALLERGAN-0801265US

PATIENT
  Sex: Male

DRUGS (2)
  1. ALPHAGAN [Suspect]
     Indication: OCULAR HYPERTENSION
     Dosage: UNK, BID
  2. XALACOM [Concomitant]
     Indication: OCULAR HYPERTENSION

REACTIONS (5)
  - CONJUNCTIVAL DISORDER [None]
  - CONJUNCTIVAL HYPERAEMIA [None]
  - CONJUNCTIVITIS ALLERGIC [None]
  - ECTROPION [None]
  - LACRIMATION INCREASED [None]
